FAERS Safety Report 6666518-6 (Version None)
Quarter: 2010Q2

REPORT INFORMATION
  Report Type: 
  Country: None (occurrence: None)
  Receive Date: 20100402
  Receipt Date: 20100323
  Transmission Date: 20101027
  Serious: Yes (Hospitalization, Other)
  Sender: FDA-Public Use
  Company Number: BR-ABBOTT-09P-020-0497926-00

PATIENT
  Sex: Female
  Weight: 65 kg

DRUGS (14)
  1. HUMIRA [Suspect]
     Indication: RHEUMATOID ARTHRITIS
     Dates: start: 20050801, end: 20100127
  2. HUMIRA [Suspect]
     Dates: start: 20100212
  3. METHOTREXATE [Concomitant]
     Indication: RHEUMATOID ARTHRITIS
     Route: 048
     Dates: start: 20041101, end: 20100301
  4. DEFLAZACORT [Concomitant]
     Indication: RHEUMATOID ARTHRITIS
     Dosage: 6MG X 0.2
     Route: 048
     Dates: start: 19850101
  5. WARFARIN SODIUM [Concomitant]
     Indication: PULMONARY EMBOLISM
     Route: 048
     Dates: start: 20070901
  6. WARFARIN SODIUM [Concomitant]
     Indication: VENOUS INSUFFICIENCY
  7. WARFARIN SODIUM [Concomitant]
     Indication: ANTICOAGULANT THERAPY
  8. PHENOBARBITAL TAB [Concomitant]
     Indication: CONVULSION PROPHYLAXIS
     Route: 048
     Dates: start: 19990101
  9. PHENOBARBITAL TAB [Concomitant]
     Indication: CONVULSION
  10. OMEPRAZOLE [Concomitant]
     Indication: PROPHYLAXIS AGAINST GASTROINTESTINAL ULCER
     Route: 048
     Dates: start: 19890101
  11. CALCIUM +VIT D [Concomitant]
     Indication: OSTEOPOROSIS
     Dates: start: 19900101
  12. ALENDRONATE SODIUM [Concomitant]
     Indication: OSTEOPOROSIS
     Route: 048
     Dates: start: 19900101
  13. CALCIUM CARBONATE [Concomitant]
     Indication: MINERAL SUPPLEMENTATION
     Route: 048
     Dates: start: 20060101
  14. VITAMIN A+D [Concomitant]
     Indication: VITAMIN SUPPLEMENTATION
     Dosage: 6 DROPS PER DAY
     Route: 048
     Dates: start: 19900101

REACTIONS (7)
  - ALOPECIA [None]
  - CYST [None]
  - INFLAMMATION [None]
  - INFLUENZA [None]
  - LOCALISED INFECTION [None]
  - PYREXIA [None]
  - WHITE BLOOD CELL COUNT DECREASED [None]
